FAERS Safety Report 7205805-X (Version None)
Quarter: 2010Q4

REPORT INFORMATION
  Report Type: 
  Country: None (occurrence: None)
  Receive Date: 20101231
  Receipt Date: 20101222
  Transmission Date: 20110411
  Serious: Yes (Death, Other)
  Sender: FDA-Public Use
  Company Number: JP-MERCK-1012USA03881

PATIENT
  Age: 69 Year
  Sex: Female

DRUGS (1)
  1. PEPCID [Suspect]
     Route: 048

REACTIONS (8)
  - DIABETES MELLITUS [None]
  - HEPATITIS B [None]
  - LIVER DISORDER [None]
  - MYCOBACTERIUM CHELONEI INFECTION [None]
  - PNEUMONIA [None]
  - PSEUDALLESCHERIA INFECTION [None]
  - RHEUMATOID ARTHRITIS [None]
  - SEPSIS [None]
